FAERS Safety Report 4276098-0 (Version None)
Quarter: 2004Q1

REPORT INFORMATION
  Report Type: 
  Country: None (occurrence: None)
  Receive Date: 20040121
  Receipt Date: 20030903
  Transmission Date: 20041129
  Serious: Yes (Other)
  Sender: FDA-Public Use
  Company Number: US-GLAXOSMITHKLINE-A0424509A

PATIENT
  Age: 28 Year
  Sex: Male

DRUGS (3)
  1. VALTREX [Suspect]
     Dosage: 500MG AS REQUIRED
     Route: 048
  2. MULTIVITAMIN [Concomitant]
  3. PROPECIA [Concomitant]

REACTIONS (3)
  - DEPRESSED LEVEL OF CONSCIOUSNESS [None]
  - HEADACHE [None]
  - NAUSEA [None]
